FAERS Safety Report 7590465-9 (Version None)
Quarter: 2011Q3

REPORT INFORMATION
  Report Type: 
  Country: None (occurrence: None)
  Receive Date: 20110705
  Receipt Date: 20110628
  Transmission Date: 20111222
  Serious: Yes (Death, Hospitalization)
  Sender: FDA-Public Use
  Company Number: AU-PFIZER INC-2011141377

PATIENT
  Age: 45 Year
  Sex: Female

DRUGS (2)
  1. PRISTIQ [Suspect]
     Dosage: UNK
  2. RULIDE [Suspect]
     Dosage: UNK

REACTIONS (3)
  - STEVENS-JOHNSON SYNDROME [None]
  - DEATH [None]
  - TOXIC EPIDERMAL NECROLYSIS [None]
